FAERS Safety Report 21051351 (Version 2)
Quarter: 2022Q3

REPORT INFORMATION
  Report Type: Report from Study
  Country: CA (occurrence: CA)
  Receive Date: 20220707
  Receipt Date: 20220830
  Transmission Date: 20221027
  Serious: Yes (Hospitalization, Other)
  Sender: FDA-Public Use
  Company Number: CA-ABBVIE-22K-028-4456877-00

PATIENT
  Sex: Male
  Weight: 90.800 kg

DRUGS (3)
  1. RINVOQ [Suspect]
     Active Substance: UPADACITINIB
     Indication: Rheumatoid arthritis
     Route: 048
     Dates: start: 20220609, end: 20220630
  2. RINVOQ [Suspect]
     Active Substance: UPADACITINIB
     Route: 048
     Dates: start: 20220701, end: 202207
  3. HYDROXYCHLOROQUINE [Concomitant]
     Active Substance: HYDROXYCHLOROQUINE
     Indication: Product used for unknown indication

REACTIONS (19)
  - Cerebrovascular disorder [Unknown]
  - Fatigue [Unknown]
  - Coordination abnormal [Unknown]
  - Speech disorder [Recovered/Resolved]
  - Illness [Unknown]
  - Neck pain [Unknown]
  - Mean platelet volume decreased [Unknown]
  - Neutrophil percentage increased [Unknown]
  - Lymphocyte percentage decreased [Unknown]
  - Monocyte percentage decreased [Unknown]
  - Neutrophil count increased [Unknown]
  - Lymphocyte count decreased [Unknown]
  - Hydrogen breath test abnormal [Unknown]
  - Carbon dioxide decreased [Unknown]
  - Oxygen saturation increased [Unknown]
  - Oxygen saturation increased [Unknown]
  - Lethargy [Recovered/Resolved]
  - Muscular weakness [Recovered/Resolved]
  - Blood creatinine increased [Unknown]

NARRATIVE: CASE EVENT DATE: 20220101
